FAERS Safety Report 9673510 (Version 2)
Quarter: 2014Q1

REPORT INFORMATION
  Report Type: Spontaneous
  Country: US (occurrence: US)
  Receive Date: 20131106
  Receipt Date: 20140307
  Transmission Date: 20141002
  Serious: No
  Sender: FDA-Public Use
  Company Number: US-AMGEN-USASP2013074499

PATIENT
  Age: 68 Year
  Sex: Female

DRUGS (29)
  1. ENBREL [Suspect]
     Indication: PRODUCT USED FOR UNKNOWN INDICATION
     Dosage: UNK
     Route: 065
  2. ACTEMRA [Concomitant]
     Dosage: UNK
  3. TAMIFLU [Concomitant]
     Dosage: UNK
  4. MVI                                /07504101/ [Concomitant]
     Dosage: UNK
  5. SYNTHROID [Concomitant]
     Dosage: UNK
  6. ZOLOFT [Concomitant]
     Dosage: UNK
  7. TYLENOL                            /00020001/ [Concomitant]
     Dosage: UNK
  8. LYRICA [Concomitant]
     Dosage: UNK
  9. SINGULAR [Concomitant]
     Dosage: UNK
  10. NASOCORT [Concomitant]
     Dosage: UNK
  11. ADVAIR [Concomitant]
     Dosage: UNK
  12. LAMICTAL [Concomitant]
     Dosage: UNK
  13. RESTASIS [Concomitant]
     Dosage: UNK
  14. FOLIC ACID [Concomitant]
     Dosage: UNK
  15. PREVACID [Concomitant]
     Dosage: UNK
  16. REFRESH                            /00007001/ [Concomitant]
     Dosage: UNK
  17. VICODIN [Concomitant]
     Dosage: UNK
  18. ALBUTEROL                          /00139501/ [Concomitant]
     Dosage: UNK
  19. FOSAMAX [Concomitant]
     Dosage: UNK
  20. XANAX [Concomitant]
     Dosage: UNK
  21. ZYRTEC [Concomitant]
     Dosage: UNK
  22. CELEXA                             /00582602/ [Concomitant]
     Dosage: UNK
  23. FLEXERIL                           /00428402/ [Concomitant]
     Dosage: UNK
  24. VITAMIN D                          /00107901/ [Concomitant]
     Dosage: UNK
  25. SIMPONI [Concomitant]
     Dosage: UNK
  26. TAZACT                             /01173601/ [Concomitant]
     Dosage: UNK
  27. ANTIVERT                           /00007101/ [Concomitant]
     Dosage: UNK
  28. PHENERGAN                          /00033001/ [Concomitant]
     Dosage: UNK
  29. SYSTANE [Concomitant]
     Dosage: UNK

REACTIONS (1)
  - Drug hypersensitivity [Unknown]
